FAERS Safety Report 5371816-2 (Version None)
Quarter: 2007Q2

REPORT INFORMATION
  Report Type: 
  Country: None (occurrence: None)
  Receive Date: 20070627
  Receipt Date: 20070620
  Transmission Date: 20071010
  Serious: Yes (Other)
  Sender: FDA-Public Use
  Company Number: US-BAYER-200511172BWH

PATIENT
  Age: 22 Year
  Sex: Male

DRUGS (1)
  1. GENERIC CIPRO (MANUFACTURER TEVA PHARMACEUTICALS USA, INC. [Suspect]
     Indication: LOCALISED INFECTION

REACTIONS (2)
  - AGGRESSION [None]
  - PHYSICAL ASSAULT [None]
